FAERS Safety Report 12783781 (Version 2)
Quarter: 2017Q1

REPORT INFORMATION
  Report Type: Report from Study
  Country: JP (occurrence: JP)
  Receive Date: 20160927
  Receipt Date: 20170123
  Transmission Date: 20170428
  Serious: Yes (Other)
  Sender: FDA-Public Use
  Company Number: JP-AMGEN-JPNNI2016065821

PATIENT
  Age: 29 Year
  Sex: Male
  Weight: 56 kg

DRUGS (33)
  1. LASTET [Suspect]
     Active Substance: ETOPOSIDE
     Dosage: 163 MG, UNK
     Route: 041
     Dates: start: 20160118, end: 20160122
  2. LENOGRASTIM RECOMBINANT [Suspect]
     Active Substance: LENOGRASTIM
     Indication: NEUTROPHIL COUNT DECREASED
     Dosage: 150 MUG, UNK
     Route: 065
     Dates: start: 20151217, end: 20151220
  3. PRIMPERAN [Concomitant]
     Active Substance: METOCLOPRAMIDE HYDROCHLORIDE
  4. CLARITIN [Concomitant]
     Active Substance: LORATADINE
     Indication: PYREXIA
     Dosage: UNK
     Route: 048
  5. LENDORMIN [Concomitant]
     Active Substance: BROTIZOLAM
     Indication: INSOMNIA
     Dosage: UNK
     Route: 048
  6. PASETOCIN                          /00249601/ [Concomitant]
     Active Substance: AMOXICILLIN
     Indication: PYREXIA
     Dosage: UNK
     Route: 048
  7. BRIPLATIN [Suspect]
     Active Substance: CISPLATIN
     Dosage: 32.6 MG, UNK
     Route: 041
     Dates: start: 20151228, end: 20160101
  8. LASTET [Suspect]
     Active Substance: ETOPOSIDE
     Indication: TESTIS CANCER
     Dosage: 163 MG, UNK
     Route: 041
     Dates: start: 20151207, end: 20151211
  9. FAMOTIDINE. [Concomitant]
     Active Substance: FAMOTIDINE
     Dosage: UNK
     Route: 048
  10. PRIMPERAN [Concomitant]
     Active Substance: METOCLOPRAMIDE HYDROCHLORIDE
     Indication: NAUSEA
     Dosage: UNK
     Route: 048
  11. PICOSULFATE NA [Concomitant]
     Indication: CONSTIPATION
     Dosage: UNK
     Route: 048
  12. BLEOMYCIN HYDROCHLORIDE [Suspect]
     Active Substance: BLEOMYCIN HYDROCHLORIDE
     Dosage: 30 MG, UNK
     Route: 041
     Dates: start: 20160118, end: 20160125
  13. ISODINE [Concomitant]
     Active Substance: POVIDONE-IODINE
     Indication: RHINORRHOEA
     Dosage: UNK
     Route: 049
  14. PEGFILGRASTIM [Suspect]
     Active Substance: PEGFILGRASTIM
     Dosage: 3.6 MG, UNK
     Route: 058
     Dates: start: 20160102, end: 20160102
  15. LASTET [Suspect]
     Active Substance: ETOPOSIDE
     Dosage: 163 MG, UNK
     Route: 041
     Dates: start: 20151228, end: 20160101
  16. PEGFILGRASTIM [Suspect]
     Active Substance: PEGFILGRASTIM
     Indication: COLONY STIMULATING FACTOR PROPHYLAXIS
     Dosage: 3.6 MG, UNK
     Route: 058
     Dates: start: 20151212, end: 20151212
  17. BRIPLATIN [Suspect]
     Active Substance: CISPLATIN
     Indication: TESTIS CANCER
     Dosage: 32.6 MG, UNK
     Route: 041
     Dates: start: 20151207, end: 20151211
  18. EMEND [Concomitant]
     Active Substance: APREPITANT
     Dosage: UNK
     Route: 048
  19. LOXONIN [Concomitant]
     Active Substance: LOXOPROFEN SODIUM
     Indication: PYREXIA
     Dosage: UNK
     Route: 048
  20. DENOSALIN [Concomitant]
     Dosage: UNK
     Route: 041
  21. MANNITOL. [Concomitant]
     Active Substance: MANNITOL
     Dosage: UNK
     Route: 065
  22. ZYPREXA [Concomitant]
     Active Substance: OLANZAPINE
     Indication: NAUSEA
     Dosage: UNK
     Route: 048
  23. WYPAX [Concomitant]
     Active Substance: LORAZEPAM
     Dosage: UNK
     Route: 048
  24. ASPARA POTASSIUM [Concomitant]
     Active Substance: POTASSIUM ASPARTATE
     Dosage: UNK
     Route: 041
  25. PEGFILGRASTIM [Suspect]
     Active Substance: PEGFILGRASTIM
     Dosage: 3.6 MG, UNK
     Route: 058
     Dates: start: 20160123, end: 20160123
  26. BLEOMYCIN HYDROCHLORIDE [Suspect]
     Active Substance: BLEOMYCIN HYDROCHLORIDE
     Indication: TESTIS CANCER
     Dosage: 30 MG, UNK
     Route: 041
     Dates: start: 20151207, end: 20151214
  27. DECADRON [Concomitant]
     Active Substance: DEXAMETHASONE
     Dosage: UNK
     Route: 048
  28. CRAVIT [Concomitant]
     Active Substance: LEVOFLOXACIN
     Indication: PYREXIA
     Dosage: UNK
     Route: 048
  29. DECADRON [Concomitant]
     Active Substance: DEXAMETHASONE
     Route: 065
  30. BRIPLATIN [Suspect]
     Active Substance: CISPLATIN
     Dosage: 32.6 MG, UNK
     Route: 041
     Dates: start: 20160118, end: 20160122
  31. BLEOMYCIN HYDROCHLORIDE [Suspect]
     Active Substance: BLEOMYCIN HYDROCHLORIDE
     Dosage: 30 MG, UNK
     Route: 041
     Dates: start: 20151228, end: 20160104
  32. RINDERON                           /00008501/ [Concomitant]
     Active Substance: BETAMETHASONE
     Indication: PYREXIA
     Dosage: UNK
     Route: 048
  33. ALOXI [Concomitant]
     Active Substance: PALONOSETRON HYDROCHLORIDE
     Dosage: UNK
     Route: 042

REACTIONS (37)
  - Platelet count abnormal [Recovered/Resolved]
  - Lymphocyte count abnormal [Recovered/Resolved]
  - Haemoglobin decreased [Recovered/Resolved]
  - Rhinorrhoea [Recovered/Resolved]
  - Protein total decreased [Recovered/Resolved]
  - Blood uric acid decreased [Recovered/Resolved]
  - Haematocrit abnormal [Recovered/Resolved]
  - Gamma-glutamyltransferase increased [Recovered/Resolved]
  - Pyrexia [Recovered/Resolved]
  - Blood sodium abnormal [Recovered/Resolved]
  - Oropharyngeal discomfort [Recovered/Resolved]
  - Chest pain [Recovered/Resolved]
  - Blood uric acid abnormal [Recovered/Resolved]
  - Eosinophil count abnormal [Recovered/Resolved]
  - Blood potassium increased [Recovered/Resolved]
  - Haematocrit decreased [Recovered/Resolved]
  - Pyrexia [Recovered/Resolved]
  - C-reactive protein increased [Recovered/Resolved]
  - Chest pain [Recovered/Resolved]
  - Blood alkaline phosphatase abnormal [Recovered/Resolved]
  - Blood creatine phosphokinase decreased [Recovered/Resolved]
  - Red blood cell count decreased [Recovered/Resolved]
  - Insomnia [Recovered/Resolved]
  - Musculoskeletal pain [Recovered/Resolved]
  - Pyrexia [Recovered/Resolved]
  - C-reactive protein increased [Recovered/Resolved]
  - Nausea [Recovering/Resolving]
  - Blood lactate dehydrogenase increased [Recovered/Resolved]
  - Constipation [Recovered/Resolved]
  - Blood alkaline phosphatase increased [Recovered/Resolved]
  - Colony stimulating factor therapy [Unknown]
  - Neutrophil count decreased [Recovered/Resolved]
  - Blood glucose decreased [Recovered/Resolved]
  - Monocyte count abnormal [Recovered/Resolved]
  - Basophil count abnormal [Recovered/Resolved]
  - Blood potassium abnormal [Recovered/Resolved]
  - Blood chloride abnormal [Recovered/Resolved]

NARRATIVE: CASE EVENT DATE: 20151212
